FAERS Safety Report 6979407-4 (Version None)
Quarter: 2010Q3

REPORT INFORMATION
  Report Type: 
  Country: None (occurrence: None)
  Receive Date: 20100910
  Receipt Date: 20100910
  Transmission Date: 20110219
  Serious: Yes (Other)
  Sender: FDA-Public Use
  Company Number: None

PATIENT
  Age: 40 Year
  Sex: Female
  Weight: 75 kg

DRUGS (1)
  1. PHENTERMINE HCL [Suspect]
     Indication: OVERWEIGHT
     Dosage: 37.5 MB 1/2 TAB TWICE DAIL ORAL
     Route: 048
     Dates: start: 20100809, end: 20100901

REACTIONS (3)
  - CHEST DISCOMFORT [None]
  - DIZZINESS [None]
  - DYSPNOEA [None]
